FAERS Safety Report 9551355 (Version 1)
Quarter: 2013Q3

REPORT INFORMATION
  Report Type: Spontaneous
  Country: US (occurrence: None)
  Receive Date: 20130923
  Receipt Date: 20130923
  Transmission Date: 20140515
  Serious: Yes (Life-Threatening)
  Sender: FDA-Public Use
  Company Number: None

PATIENT
  Age: 40 Year
  Sex: Female
  Weight: 125 kg

DRUGS (1)
  1. AVELOX [Suspect]
     Indication: LUNG INFECTION

REACTIONS (6)
  - Drug dose omission [None]
  - Nausea [None]
  - Vomiting [None]
  - Blindness [None]
  - Loss of consciousness [None]
  - Anaphylactic reaction [None]
